FAERS Safety Report 24122314 (Version 1)
Quarter: 2024Q3

REPORT INFORMATION
  Report Type: Spontaneous
  Country: CN (occurrence: CN)
  Receive Date: 20240722
  Receipt Date: 20240722
  Transmission Date: 20241017
  Serious: Yes (Other)
  Sender: ROCHE
  Company Number: CN-ROCHE-10000030001

PATIENT
  Age: 53 Year
  Sex: Male

DRUGS (5)
  1. ACTEMRA [Suspect]
     Active Substance: TOCILIZUMAB
     Indication: Rheumatoid arthritis
     Route: 058
  2. CYCLOPHOSPHAMIDE [Concomitant]
     Active Substance: CYCLOPHOSPHAMIDE
     Indication: Rheumatoid arthritis
  3. METHOTREXATE [Concomitant]
     Active Substance: METHOTREXATE
     Indication: Rheumatoid arthritis
     Dosage: 2.5 MG / 1 EA
  4. BETAMETHASONE [Concomitant]
     Active Substance: BETAMETHASONE\BETAMETHASONE DIPROPIONATE
     Indication: Rheumatoid arthritis
  5. THALIDOMIDE [Concomitant]
     Active Substance: THALIDOMIDE
     Indication: Rheumatoid arthritis

REACTIONS (5)
  - Pleural calcification [Unknown]
  - Pulmonary fibrosis [Unknown]
  - Splenomegaly [Unknown]
  - Accessory spleen [Unknown]
  - Disease recurrence [Unknown]

NARRATIVE: CASE EVENT DATE: 20230723
